FAERS Safety Report 5638873-7 (Version None)
Quarter: 2008Q1

REPORT INFORMATION
  Report Type: 
  Country: None (occurrence: None)
  Receive Date: 20080222
  Receipt Date: 20080222
  Transmission Date: 20080703
  Serious: No
  Sender: FDA-Public Use
  Company Number: None

PATIENT
  Age: 44 Year
  Sex: Male
  Weight: 72.5755 kg

DRUGS (1)
  1. ZICAM -OTC COLD REMEDY SPRAY MATRIXX [Suspect]
     Indication: NASOPHARYNGITIS
     Dosage: 1  SPRAY IN EACH NOSTRIL; 1 SPRAY; NASAL; USE ONLY ONCE
     Route: 045
     Dates: start: 20071223, end: 20071223

REACTIONS (3)
  - AGEUSIA [None]
  - ANOSMIA [None]
  - BURNING SENSATION [None]
